FAERS Safety Report 25961886 (Version 1)
Quarter: 2025Q4

REPORT INFORMATION
  Report Type: Spontaneous
  Country: US (occurrence: US)
  Receive Date: 20251027
  Receipt Date: 20251027
  Transmission Date: 20260117
  Serious: Yes (Life-Threatening, Hospitalization)
  Sender: MYLAN
  Company Number: US-MYLANLABS-2025M1089967

PATIENT
  Age: 30 Year
  Sex: Male

DRUGS (2)
  1. AMIODARONE HYDROCHLORIDE [Suspect]
     Active Substance: AMIODARONE HYDROCHLORIDE
     Indication: Atrial fibrillation
     Dosage: 150 MILLIGRAM, DILUTED IN DEXTROSE AT A CONCENTRATION OF 150 MG/100 ML (1.5 MG/ML)
  2. DEXTROSE [Concomitant]
     Active Substance: DEXTROSE MONOHYDRATE
     Indication: Vehicle solution use
     Dosage: 100 MILLILITER, DILUTED AT A CONCENTRATION OF 150 MG/100 ML (1.5 MG/ML)

REACTIONS (3)
  - Skin necrosis [Recovered/Resolved]
  - Administration site extravasation [Recovered/Resolved]
  - Pneumonia aspiration [Unknown]
